FAERS Safety Report 19619365 (Version 3)
Quarter: 2021Q4

REPORT INFORMATION
  Report Type: Spontaneous
  Country: US (occurrence: US)
  Receive Date: 20210727
  Receipt Date: 20211002
  Transmission Date: 20220303
  Serious: No
  Sender: FDA-Public Use
  Company Number: US-ORGANON-O2107USA002066

PATIENT
  Sex: Female
  Weight: 48.53 kg

DRUGS (2)
  1. NEXPLANON [Suspect]
     Active Substance: ETONOGESTREL
     Indication: Contraception
     Dosage: 68 MILLIGRAM IN LEFT ARM, ONCE
     Dates: start: 20200417
  2. NEXPLANON [Suspect]
     Active Substance: ETONOGESTREL
     Indication: Contraception
     Dosage: 1 DOSAGE FORM
     Dates: end: 20200417

REACTIONS (2)
  - Inflammation [Unknown]
  - Arthropod bite [Unknown]
